FAERS Safety Report 13383112 (Version 1)
Quarter: 2017Q1

REPORT INFORMATION
  Report Type: Spontaneous
  Country: DE (occurrence: DE)
  Receive Date: 20170329
  Receipt Date: 20170329
  Transmission Date: 20170429
  Serious: Yes (Other)
  Sender: FDA-Public Use
  Company Number: DE-AMGEN-DEUSP2017045923

PATIENT

DRUGS (1)
  1. ROMIPLOSTIM [Suspect]
     Active Substance: ROMIPLOSTIM
     Indication: IMMUNE THROMBOCYTOPENIC PURPURA
     Dosage: UP TO 10 MCG/KG, EVERY 6 TO 10 DAYS
     Route: 058

REACTIONS (4)
  - Ischaemic stroke [Recovered/Resolved]
  - Acute kidney injury [Recovered/Resolved]
  - Acute myocardial infarction [Recovered/Resolved]
  - Pneumonia [Recovered/Resolved]
